FAERS Safety Report 5642370-2 (Version None)
Quarter: 2008Q1

REPORT INFORMATION
  Report Type: 
  Country: None (occurrence: None)
  Receive Date: 20080131
  Receipt Date: 20071126
  Transmission Date: 20080703
  Serious: No
  Sender: FDA-Public Use
  Company Number: US200711006031

PATIENT
  Age: 28 Year
  Sex: Female
  Weight: 77.6 kg

DRUGS (7)
  1. BYETTA [Suspect]
     Indication: WEIGHT CONTROL
     Dosage: SEE IMAGE
     Route: 058
     Dates: start: 20070501, end: 20070701
  2. BYETTA [Suspect]
     Indication: WEIGHT CONTROL
     Dosage: SEE IMAGE
     Route: 058
     Dates: start: 20070701, end: 20071001
  3. BYETTA [Suspect]
     Indication: WEIGHT CONTROL
     Dosage: SEE IMAGE
     Route: 058
     Dates: start: 20071001, end: 20071101
  4. BYETTA [Suspect]
     Indication: WEIGHT CONTROL
     Dosage: SEE IMAGE
     Route: 058
     Dates: start: 20071101, end: 20071101
  5. BYETTA [Suspect]
     Indication: WEIGHT CONTROL
     Dosage: SEE IMAGE
     Route: 058
     Dates: start: 20071101, end: 20071123
  6. BYETTA [Suspect]
     Indication: WEIGHT CONTROL
     Dosage: SEE IMAGE
     Route: 058
     Dates: start: 20071101, end: 20071123
  7. BYETTA [Suspect]
     Dosage: 5 UG, 2/D, SUBCUTANEOUS
     Route: 058
     Dates: start: 20071123

REACTIONS (5)
  - DIZZINESS [None]
  - INCREASED APPETITE [None]
  - NAUSEA [None]
  - VOMITING [None]
  - WEIGHT DECREASED [None]
